FAERS Safety Report 6671158-9 (Version None)
Quarter: 2010Q2

REPORT INFORMATION
  Report Type: 
  Country: None (occurrence: None)
  Receive Date: 20100406
  Receipt Date: 20100406
  Transmission Date: 20101027
  Serious: Yes (Hospitalization)
  Sender: FDA-Public Use
  Company Number: None

PATIENT
  Age: 44 Year
  Sex: Male

DRUGS (1)
  1. FLUPHENAZINE [Suspect]
     Indication: SCHIZOPHRENIA
     Dosage: 5MG BID PO
     Route: 048
     Dates: start: 20100326, end: 20100328

REACTIONS (3)
  - DYSARTHRIA [None]
  - DYSTONIA [None]
  - MUSCULAR WEAKNESS [None]
